FAERS Safety Report 8932052 (Version 3)
Quarter: 2013Q1

REPORT INFORMATION
  Report Type: Spontaneous
  Country: JP (occurrence: JP)
  Receive Date: 20121128
  Receipt Date: 20130227
  Transmission Date: 20140127
  Serious: Yes (Death, Hospitalization)
  Sender: FDA-Public Use
  Company Number: JP-PFIZER INC-2012227578

PATIENT
  Age: 76 Year
  Sex: Female
  Weight: 67.4 kg

DRUGS (1)
  1. TORISEL [Suspect]
     Indication: RENAL CELL CARCINOMA
     Dosage: 25 MG, WEEKLY
     Route: 041
     Dates: start: 20120831, end: 20121102

REACTIONS (3)
  - Pneumonia bacterial [Fatal]
  - Interstitial lung disease [Fatal]
  - Blood creatinine increased [Recovered/Resolved]
